FAERS Safety Report 15273255 (Version 1)
Quarter: 2018Q3

REPORT INFORMATION
  Report Type: Other
  Country: US (occurrence: US)
  Receive Date: 20180813
  Receipt Date: 20180813
  Transmission Date: 20181010
  Serious: Yes (Death)
  Sender: FDA-Public Use
  Company Number: US-GENUS_LIFESCIENCES-USA-POI0580201800104

PATIENT
  Age: 41 Year
  Sex: Female
  Weight: 72.7 kg

DRUGS (2)
  1. OXYCODONE HCL CAPSULES [Suspect]
     Active Substance: OXYCODONE HYDROCHLORIDE
     Dates: start: 2016, end: 2016
  2. TAPENTADOL [Suspect]
     Active Substance: TAPENTADOL
     Dates: start: 2016, end: 2016

REACTIONS (3)
  - Pulmonary oedema [Fatal]
  - Completed suicide [Fatal]
  - Pneumonia aspiration [Fatal]

NARRATIVE: CASE EVENT DATE: 201609
